FAERS Safety Report 5663233-2 (Version None)
Quarter: 2008Q1

REPORT INFORMATION
  Report Type: 
  Country: None (occurrence: None)
  Receive Date: 20080313
  Receipt Date: 20080312
  Transmission Date: 20080703
  Serious: Yes (Disabling, Other)
  Sender: FDA-Public Use
  Company Number: US-WYE-H00588707

PATIENT
  Age: 41 Year
  Sex: Male
  Weight: 74.91 kg

DRUGS (1)
  1. EFFEXOR XR [Suspect]
     Route: 048
     Dates: start: 20070301, end: 20070927

REACTIONS (19)
  - ANXIETY [None]
  - COORDINATION ABNORMAL [None]
  - DEPRESSION [None]
  - DISTURBANCE IN ATTENTION [None]
  - DIZZINESS [None]
  - DRUG WITHDRAWAL SYNDROME [None]
  - DRY MOUTH [None]
  - EJACULATION DISORDER [None]
  - FEELING ABNORMAL [None]
  - HEADACHE [None]
  - HYPERHIDROSIS [None]
  - INSOMNIA [None]
  - MUSCLE TWITCHING [None]
  - NIGHT SWEATS [None]
  - PARAESTHESIA [None]
  - PSYCHOMOTOR SKILLS IMPAIRED [None]
  - SUICIDAL IDEATION [None]
  - TREMOR [None]
  - UNEVALUABLE EVENT [None]
